FAERS Safety Report 6278840-6 (Version None)
Quarter: 2009Q3

REPORT INFORMATION
  Report Type: 
  Country: None (occurrence: None)
  Receive Date: 20090723
  Receipt Date: 20090714
  Transmission Date: 20100115
  Serious: Yes (Hospitalization)
  Sender: FDA-Public Use
  Company Number: US-BIOGENIDEC-2009BI002660

PATIENT
  Age: 62 Year
  Sex: Female

DRUGS (2)
  1. AVONEX [Suspect]
     Indication: MULTIPLE SCLEROSIS
     Route: 030
     Dates: start: 20011101
  2. AVONEX [Suspect]
     Route: 030
     Dates: start: 20080411, end: 20090101

REACTIONS (3)
  - DIABETES MELLITUS [None]
  - INCORRECT ROUTE OF DRUG ADMINISTRATION [None]
  - PAIN IN EXTREMITY [None]
